FAERS Safety Report 8392365-3 (Version None)
Quarter: 2012Q2

REPORT INFORMATION
  Report Type: 
  Country: None (occurrence: None)
  Receive Date: 20120529
  Receipt Date: 20120521
  Transmission Date: 20120825
  Serious: Yes (Hospitalization)
  Sender: FDA-Public Use
  Company Number: US-ACTELION-A-NJ2011-49405

PATIENT

DRUGS (2)
  1. CALCIUM CHANNEL BLOCKERS [Concomitant]
  2. TRACLEER [Suspect]
     Indication: PULMONARY ARTERIAL HYPERTENSION
     Dosage: 37.5 MG, QD
     Route: 048
     Dates: start: 20080212

REACTIONS (11)
  - DYSPNOEA [None]
  - PYREXIA [None]
  - FLUID RETENTION [None]
  - HIP FRACTURE [None]
  - ATRIAL FIBRILLATION [None]
  - CARDIAC FAILURE CONGESTIVE [None]
  - CHEST PAIN [None]
  - NO THERAPEUTIC RESPONSE [None]
  - FALL [None]
  - ASTHENIA [None]
  - HYPOXIA [None]
